FAERS Safety Report 6980164-6 (Version None)
Quarter: 2010Q3

REPORT INFORMATION
  Report Type: 
  Country: None (occurrence: None)
  Receive Date: 20100908
  Receipt Date: 20100827
  Transmission Date: 20110219
  Serious: Yes (Hospitalization, Other)
  Sender: FDA-Public Use
  Company Number: KADN20100184

PATIENT
  Age: 55 Year
  Sex: Female

DRUGS (12)
  1. KADIAN [Suspect]
     Indication: PAIN
     Dosage: 150 MG, 1 IN 1 D, PER ORAL
     Route: 048
     Dates: start: 20090524, end: 20090623
  2. OPSO [Suspect]
     Indication: PAIN
     Dosage: 50 MG, 3 IN 1 D, PER ORAL; 10 MG, 3 IN 1 D, PER ORAL
     Route: 048
     Dates: start: 20090524, end: 20090623
  3. OPSO [Suspect]
     Indication: PAIN
     Dosage: 50 MG, 3 IN 1 D, PER ORAL; 10 MG, 3 IN 1 D, PER ORAL
     Route: 048
     Dates: start: 20090101
  4. MORPHINE HYDROCHLORIDE [Suspect]
     Indication: PAIN
     Dosage: 100 MG, 1 IN 1 D; 50 MG, 1 IN 1 D; 5 MG, 1 IN 1 D
     Dates: start: 20090101, end: 20090101
  5. MORPHINE HYDROCHLORIDE [Suspect]
     Indication: PAIN
     Dosage: 100 MG, 1 IN 1 D; 50 MG, 1 IN 1 D; 5 MG, 1 IN 1 D
     Dates: start: 20090101
  6. MORPHINE HYDROCHLORIDE [Suspect]
     Indication: PAIN
     Dosage: 100 MG, 1 IN 1 D; 50 MG, 1 IN 1 D; 5 MG, 1 IN 1 D
     Dates: start: 20090101
  7. DUROTEP [Suspect]
     Indication: CANCER PAIN
     Dosage: 250 MCG/HR, TRANSDERMAL; 300 MCG/HR, TRANSDERMAL
     Route: 062
     Dates: end: 20090101
  8. DUROTEP [Suspect]
     Indication: CANCER PAIN
     Dosage: 250 MCG/HR, TRANSDERMAL; 300 MCG/HR, TRANSDERMAL
     Route: 062
     Dates: start: 20090524, end: 20090623
  9. AMITRIPTYLINE HCL [Suspect]
     Indication: PRODUCT USED FOR UNKNOWN INDICATION
     Dosage: 30 MG, 1 IN 1 D, PER ORAL
     Route: 048
     Dates: start: 20090524
  10. MOBIC [Suspect]
     Indication: PRODUCT USED FOR UNKNOWN INDICATION
     Dosage: 15 MG, 1 IN 1 D, PER ORAL
     Route: 048
     Dates: start: 20090524
  11. LAC B [Suspect]
     Indication: PRODUCT USED FOR UNKNOWN INDICATION
     Dosage: 3 MG, 1 IN 1 D, PER ORAL
     Route: 048
     Dates: start: 20090524
  12. MAGLAX [Suspect]
     Indication: PRODUCT USED FOR UNKNOWN INDICATION
     Dosage: 990 MG, 1 IN 1 D, PER ORAL
     Route: 048
     Dates: start: 20090524

REACTIONS (4)
  - CONDITION AGGRAVATED [None]
  - CONVULSION [None]
  - RECTAL CANCER [None]
  - SOMNOLENCE [None]
